FAERS Safety Report 16538960 (Version 1)
Quarter: 2019Q3

REPORT INFORMATION
  Report Type: Spontaneous
  Country: DE (occurrence: DE)
  Receive Date: 20190708
  Receipt Date: 20190708
  Transmission Date: 20191004
  Serious: Yes (Life-Threatening)
  Sender: FDA-Public Use
  Company Number: DE-HIKMA PHARMACEUTICALS USA INC.-DE-H14001-19-04150

PATIENT
  Age: 46 Year
  Sex: Male
  Weight: 163 kg

DRUGS (1)
  1. CEFUROXIM HIKMA [Suspect]
     Active Substance: CEFUROXIME
     Indication: PREOPERATIVE CARE
     Route: 042
     Dates: start: 20181205, end: 20181205

REACTIONS (1)
  - Anaphylactic shock [Recovered/Resolved]

NARRATIVE: CASE EVENT DATE: 20181205
